FAERS Safety Report 6364248-1 (Version None)
Quarter: 2009Q3

REPORT INFORMATION
  Report Type: 
  Country: None (occurrence: None)
  Receive Date: 20090919
  Receipt Date: 20090805
  Transmission Date: 20100115
  Serious: No
  Sender: FDA-Public Use
  Company Number: US-ABBOTT-09P-163-0585222-00

PATIENT
  Sex: Female
  Weight: 90.8 kg

DRUGS (6)
  1. HUMIRA [Suspect]
     Indication: PSORIASIS
     Route: 058
     Dates: start: 20080901
  2. HUMIRA [Suspect]
     Indication: CROHN'S DISEASE
  3. MOTRIN [Concomitant]
     Indication: MUSCULAR DYSTROPHY
  4. VICODIN [Concomitant]
     Indication: DRUG USE FOR UNKNOWN INDICATION
     Dosage: 1 TO 2 TIMES PER WEEK
  5. COZAAR [Concomitant]
     Indication: HYPERTENSION
  6. PRILOSEC [Concomitant]
     Indication: GASTROOESOPHAGEAL REFLUX DISEASE

REACTIONS (1)
  - INJECTION SITE PAIN [None]
